FAERS Safety Report 4601910-2 (Version None)
Quarter: 2005Q2

REPORT INFORMATION
  Report Type: 
  Country: None (occurrence: None)
  Receive Date: 20050215
  Receipt Date: 20041209
  Transmission Date: 20051028
  Serious: Yes (Other)
  Sender: FDA-Public Use
  Company Number: 389071

PATIENT
  Sex: Female

DRUGS (2)
  1. PEGASYS [Suspect]
     Indication: HEPATITIS C
     Dosage: 1 PER WEEK OTHER
  2. COPEGUS [Suspect]
     Indication: HEPATITIS C
     Dosage: 6 DOSE FORM DAILY ORAL
     Route: 048

REACTIONS (1)
  - NEUTROPENIA [None]
